FAERS Safety Report 5421858-3 (Version None)
Quarter: 2007Q3

REPORT INFORMATION
  Report Type: 
  Country: None (occurrence: None)
  Receive Date: 20070820
  Receipt Date: 20070807
  Transmission Date: 20080115
  Serious: Yes (Hospitalization)
  Sender: FDA-Public Use
  Company Number: 2007SP016175

PATIENT
  Age: 63 Year
  Sex: Male

DRUGS (4)
  1. INTERFERON ALFA-2B RECOMBINANT (S-P) (INTERFERON ALFA-2B) [Suspect]
     Indication: MALIGNANT MELANOMA
     Dosage: 18 MIU; QD; IV
     Route: 042
  2. CYCLOPHOSPHAMIDE [Concomitant]
  3. ADRIAMYCIN PFS [Concomitant]
  4. VINCRISTINE [Concomitant]

REACTIONS (11)
  - CARDIAC FAILURE CONGESTIVE [None]
  - CARDIOMYOPATHY [None]
  - CARDIOTOXICITY [None]
  - HEPATIC ENZYME INCREASED [None]
  - HYPOTENSION [None]
  - LEFT VENTRICULAR DYSFUNCTION [None]
  - MITRAL VALVE INCOMPETENCE [None]
  - PLEURAL EFFUSION [None]
  - PLEUROPERICARDITIS [None]
  - TACHYPNOEA [None]
  - WHITE BLOOD CELL COUNT INCREASED [None]
